FAERS Safety Report 14594486 (Version 1)
Quarter: 2018Q1

REPORT INFORMATION
  Report Type: Spontaneous
  Country: CA (occurrence: CA)
  Receive Date: 20180302
  Receipt Date: 20180302
  Transmission Date: 20180509
  Serious: Yes (Death)
  Sender: FDA-Public Use
  Company Number: CA-TEVA-2018-CA-863791

PATIENT
  Age: 67 Year
  Sex: Female
  Weight: 84 kg

DRUGS (10)
  1. BUPROPION. [Suspect]
     Active Substance: BUPROPION
     Route: 048
  2. QUINAPRIL. [Concomitant]
     Active Substance: QUINAPRIL
  3. LATUDA FILM-COATED TABLETS [Concomitant]
  4. HYDROCHLOROTHIAZIDE. [Concomitant]
     Active Substance: HYDROCHLOROTHIAZIDE
  5. ROSUVASTATIN. [Concomitant]
     Active Substance: ROSUVASTATIN
  6. VITAMIN D [Concomitant]
     Active Substance: CHOLECALCIFEROL
  7. BUPROPION. [Suspect]
     Active Substance: BUPROPION
     Route: 048
  8. FLUVOXAMINE [Suspect]
     Active Substance: FLUVOXAMINE
     Route: 048
  9. LORAZEPAM. [Concomitant]
     Active Substance: LORAZEPAM
  10. METFORMIN [Concomitant]
     Active Substance: METFORMIN HYDROCHLORIDE

REACTIONS (3)
  - Postmortem blood drug level increased [Fatal]
  - Toxicity to various agents [Fatal]
  - Toxicologic test abnormal [Fatal]
